FAERS Safety Report 9986835 (Version 1)
Quarter: 2014Q1

REPORT INFORMATION
  Report Type: Report from Study
  Country: US (occurrence: US)
  Receive Date: 20140307
  Receipt Date: 20140307
  Transmission Date: 20141002
  Serious: No
  Sender: FDA-Public Use
  Company Number: US-ABBVIE-13P-163-1081303-00

PATIENT
  Age: 30 Year
  Sex: Male

DRUGS (7)
  1. HUMIRA [Suspect]
     Indication: CROHN^S DISEASE
     Dates: start: 201212
  2. OPANA ER [Concomitant]
     Indication: BACK PAIN
  3. DILAUDID [Concomitant]
     Indication: BACK PAIN
     Dosage: 1-2 TABS, AS NEEDED
  4. DICYCLOMINE HCL [Concomitant]
     Indication: GASTRIC DISORDER
     Dosage: 1 HOUR BEFORE MEAL
  5. AZATHIOPRINE [Concomitant]
     Indication: PRODUCT USED FOR UNKNOWN INDICATION
  6. DEXILANT [Concomitant]
     Indication: GASTRIC DISORDER
     Dosage: 30 MINUTES BEFORE BREAKFAST
  7. TESTOSTERONE CYPIONATE [Concomitant]
     Indication: PRODUCT USED FOR UNKNOWN INDICATION

REACTIONS (2)
  - Incorrect route of drug administration [Recovered/Resolved]
  - Injection site pain [Recovered/Resolved]
